FAERS Safety Report 9819290 (Version 1)
Quarter: 2014Q1

REPORT INFORMATION
  Report Type: Spontaneous
  Country: US (occurrence: US)
  Receive Date: 20140115
  Receipt Date: 20140115
  Transmission Date: 20141002
  Serious: Yes (Other)
  Sender: FDA-Public Use
  Company Number: US-TEVA-456177USA

PATIENT
  Age: 29 Year
  Sex: Male

DRUGS (9)
  1. AMIKACIN [Suspect]
     Indication: TUBERCULOSIS
     Dosage: 1500MG/WEEK
     Route: 065
  2. ETHAMBUTOL [Suspect]
     Indication: TUBERCULOSIS
     Route: 065
  3. ISONIAZID [Suspect]
     Indication: TUBERCULOSIS
     Route: 065
  4. RIFAMPICIN [Suspect]
     Indication: TUBERCULOSIS
     Route: 065
  5. PYRAZINAMIDE [Suspect]
     Indication: TUBERCULOSIS
     Route: 065
  6. MOXIFLOXACIN [Suspect]
     Indication: TUBERCULOSIS
     Dosage: 400MG/DAY
     Route: 065
  7. CYCLOSERINE [Suspect]
     Indication: TUBERCULOSIS
     Dosage: 500MG/DAY
     Route: 065
  8. LINEZOLID [Suspect]
     Indication: TUBERCULOSIS
     Dosage: 600MG/DAY
     Route: 065
  9. ETHIONAMIDE [Suspect]
     Indication: TUBERCULOSIS
     Dosage: 500MG/DAY
     Route: 065

REACTIONS (3)
  - Deafness [Unknown]
  - Thrombocytopenia [Not Recovered/Not Resolved]
  - Abdominal discomfort [Unknown]
